FAERS Safety Report 8603325-9 (Version None)
Quarter: 2012Q3

REPORT INFORMATION
  Report Type: 
  Country: None (occurrence: None)
  Receive Date: 20120817
  Receipt Date: 20120813
  Transmission Date: 20120928
  Serious: Yes (Hospitalization)
  Sender: FDA-Public Use
  Company Number: PHHY2012FR047614

PATIENT
  Sex: Female
  Weight: 33 kg

DRUGS (6)
  1. ILARIS [Suspect]
     Indication: JUVENILE ARTHRITIS
     Dosage: 150 MG, QMO
     Route: 058
     Dates: start: 20080101, end: 20120521
  2. METHOTREXATE [Concomitant]
     Indication: JUVENILE ARTHRITIS
     Dosage: 10 MG, ONCE A WEEK
     Route: 048
     Dates: start: 20120427, end: 20120521
  3. NAPROXEN [Concomitant]
     Indication: JUVENILE ARTHRITIS
     Dosage: 250 MG, BID
     Route: 048
     Dates: start: 20120427, end: 20120523
  4. UNSPECIFIED GROWTH HORMONES [Concomitant]
     Indication: GROWTH RETARDATION
     Dosage: 1 DF, UNK
     Dates: start: 20110501
  5. PREDNISONE TAB [Concomitant]
     Indication: JUVENILE ARTHRITIS
     Dosage: 6 MG, QD
     Route: 048
     Dates: start: 20120427
  6. ACETAMINOPHEN [Concomitant]
     Indication: PAIN
     Dosage: 500 MG, TID
     Route: 048
     Dates: start: 20110401, end: 20120523

REACTIONS (11)
  - PROTHROMBIN LEVEL DECREASED [None]
  - OCULAR ICTERUS [None]
  - JAUNDICE [None]
  - CHOLESTASIS [None]
  - GROWTH RETARDATION [None]
  - TRANSAMINASES INCREASED [None]
  - CHOLANGITIS [None]
  - NECROSIS [None]
  - AUTOIMMUNE HEPATITIS [None]
  - CYTOLYTIC HEPATITIS [None]
  - BLOOD BILIRUBIN INCREASED [None]
